FAERS Safety Report 14382508 (Version 3)
Quarter: 2018Q2

REPORT INFORMATION
  Report Type: Report from Study
  Country: US (occurrence: US)
  Receive Date: 20180112
  Receipt Date: 20180503
  Transmission Date: 20180711
  Serious: Yes (Other)
  Sender: FDA-Public Use
  Company Number: US-SAOL THERAPEUTICS-2017SAO01592

PATIENT
  Age: 55 Year
  Sex: Female
  Weight: 73.92 kg

DRUGS (36)
  1. COMPOUNDED BACLOFEN [Suspect]
     Active Substance: BACLOFEN
     Dosage: 89.88 ?G, \DAY
     Route: 037
     Dates: start: 20171110
  2. BUPIVACAINE. [Suspect]
     Active Substance: BUPIVACAINE
     Dosage: 9.747 MG, \DAY
     Route: 037
     Dates: start: 20170927, end: 20171027
  3. BUPIVACAINE. [Suspect]
     Active Substance: BUPIVACAINE
     Dosage: 24.901 MG, \DAY; MAX DOSE
     Route: 037
     Dates: start: 20171103, end: 20171110
  4. DROPERIDOL. [Suspect]
     Active Substance: DROPERIDOL
     Dosage: 249.01 ?G, \DAY; MAX DOSE
     Route: 037
     Dates: start: 20171103, end: 20171110
  5. COMPOUNDED BACLOFEN [Suspect]
     Active Substance: BACLOFEN
     Dosage: 48.73 ?G, \DAY
     Route: 037
     Dates: start: 20170927, end: 20171027
  6. COMPOUNDED BACLOFEN [Suspect]
     Active Substance: BACLOFEN
     Dosage: 124.51 ?G, \DAY; MAX DOSE
     Route: 037
     Dates: start: 20171103, end: 20171110
  7. DILAUDID [Suspect]
     Active Substance: HYDROMORPHONE HYDROCHLORIDE
     Dosage: 1.099 MG, \DAY
     Route: 037
     Dates: start: 20171027, end: 20171103
  8. DILAUDID [Suspect]
     Active Substance: HYDROMORPHONE HYDROCHLORIDE
     Dosage: 1.333 MG, \DAY; MAX DOSE
     Route: 037
     Dates: start: 20171027, end: 20171103
  9. BUPIVACAINE. [Suspect]
     Active Substance: BUPIVACAINE
     Dosage: 20.006 MG, \DAY; MAX DOSE
     Route: 037
     Dates: start: 20171027, end: 20171103
  10. DROPERIDOL. [Suspect]
     Active Substance: DROPERIDOL
     Dosage: 200.6 ?G, \DAY; MAX DOSE
     Route: 037
     Dates: start: 20171027, end: 20171103
  11. DROPERIDOL. [Suspect]
     Active Substance: DROPERIDOL
     Dosage: 205.25 ?G, \DAY MAX DOSE
     Route: 037
     Dates: start: 20180109
  12. DILAUDID [Suspect]
     Active Substance: HYDROMORPHONE HYDROCHLORIDE
     Dosage: 0.649 MG, \DAY
     Route: 037
     Dates: start: 20170927, end: 20171027
  13. DILAUDID [Suspect]
     Active Substance: HYDROMORPHONE HYDROCHLORIDE
     Dosage: 1.198 MG, \DAY
     Route: 037
     Dates: start: 20171110
  14. DILAUDID [Suspect]
     Active Substance: HYDROMORPHONE HYDROCHLORIDE
     Dosage: 1.368 MG, \DAY, MAX DOSE
     Route: 037
     Dates: start: 20180109
  15. BUPIVACAINE. [Suspect]
     Active Substance: BUPIVACAINE
     Dosage: 11.79 MG, \DAY, MAX DOSE
     Route: 037
     Dates: start: 20170927, end: 20171027
  16. COMPOUNDED BACLOFEN [Suspect]
     Active Substance: BACLOFEN
     Dosage: 58.95 ?G, \DAY, MAX DOSE
     Route: 037
     Dates: start: 20170927, end: 20171027
  17. COMPOUNDED BACLOFEN [Suspect]
     Active Substance: BACLOFEN
     Dosage: 107.25 ?G, \DAY
     Route: 037
     Dates: start: 20171103, end: 20171110
  18. DILAUDID [Suspect]
     Active Substance: HYDROMORPHONE HYDROCHLORIDE
     Dosage: 0.786 MG, \DAY, MAX DOSE
     Route: 037
     Dates: start: 20170927, end: 20171027
  19. DILAUDID [Suspect]
     Active Substance: HYDROMORPHONE HYDROCHLORIDE
     Dosage: 1.488 MG, \DAY; MAX DOSE
     Route: 037
     Dates: start: 20171110, end: 20180109
  20. BUPIVACAINE. [Suspect]
     Active Substance: BUPIVACAINE
     Dosage: 16.486 MG, \DAY
     Route: 037
     Dates: start: 20171027, end: 20171103
  21. BUPIVACAINE. [Suspect]
     Active Substance: BUPIVACAINE
     Dosage: 22.324 MG, \DAY; MAX DOSE
     Route: 037
     Dates: start: 20171110, end: 20180109
  22. DROPERIDOL. [Suspect]
     Active Substance: DROPERIDOL
     Dosage: 97.47 ?G, \DAY
     Route: 037
     Dates: start: 20170927, end: 20171027
  23. BUPIVACAINE. [Suspect]
     Active Substance: BUPIVACAINE
     Dosage: 21.450 MG, \DAY
     Route: 037
     Dates: start: 20171103, end: 20171110
  24. DROPERIDOL. [Suspect]
     Active Substance: DROPERIDOL
     Dosage: 164.86 ?G, \DAY
     Route: 037
     Dates: start: 20171027, end: 20171103
  25. DROPERIDOL. [Suspect]
     Active Substance: DROPERIDOL
     Dosage: 223.24 ?G, \DAY; MAX  DOSE
     Route: 037
     Dates: start: 20171110, end: 20180109
  26. COMPOUNDED BACLOFEN [Suspect]
     Active Substance: BACLOFEN
     Dosage: 82.43 ?G, \DAY
     Route: 037
     Dates: start: 20171027, end: 20171103
  27. COMPOUNDED BACLOFEN [Suspect]
     Active Substance: BACLOFEN
     Dosage: 111.62 ?G, \DAY, MAX DOSE
     Route: 037
     Dates: start: 20171110, end: 20180109
  28. DILAUDID [Suspect]
     Active Substance: HYDROMORPHONE HYDROCHLORIDE
     Dosage: 1.430 MG, \DAY
     Route: 037
     Dates: start: 20171103, end: 20171110
  29. BUPIVACAINE. [Suspect]
     Active Substance: BUPIVACAINE
     Dosage: 17.975 MG, \DAY
     Route: 037
     Dates: start: 20171110
  30. COMPOUNDED BACLOFEN [Suspect]
     Active Substance: BACLOFEN
     Dosage: 100.3 ?G, \DAY; MAX DOSE
     Route: 037
     Dates: start: 20171027, end: 20171103
  31. COMPOUNDED BACLOFEN [Suspect]
     Active Substance: BACLOFEN
     Dosage: 102.62 ?G, \DAY, MAX DOSE
     Route: 037
     Dates: start: 20180109
  32. DILAUDID [Suspect]
     Active Substance: HYDROMORPHONE HYDROCHLORIDE
     Dosage: 1.660 MG, \DAY; MAX DOSE
     Route: 037
     Dates: start: 20171103, end: 20171110
  33. BUPIVACAINE. [Suspect]
     Active Substance: BUPIVACAINE
     Dosage: 20.525 MG, \DAY, MAX DOSE
     Route: 037
     Dates: start: 20180109
  34. DROPERIDOL. [Suspect]
     Active Substance: DROPERIDOL
     Dosage: 179.75 ?G, \DAY
     Route: 037
     Dates: start: 20171110
  35. DROPERIDOL. [Suspect]
     Active Substance: DROPERIDOL
     Dosage: 117.9 ?G, \DAY, MAX DOSE
     Route: 037
     Dates: start: 20170927, end: 20171027
  36. DROPERIDOL. [Suspect]
     Active Substance: DROPERIDOL
     Dosage: 214.50 ?G, \DAY
     Route: 037
     Dates: start: 20171103, end: 20171110

REACTIONS (6)
  - Pain [Recovered/Resolved]
  - Headache [Recovered/Resolved]
  - Medical device discomfort [Recovered/Resolved]
  - Hypoaesthesia [Recovered/Resolved]
  - Implant site pain [Recovered/Resolved]
  - Device dislocation [Recovered/Resolved]

NARRATIVE: CASE EVENT DATE: 20171006
